FAERS Safety Report 23737100 (Version 1)
Quarter: 2024Q2

REPORT INFORMATION
  Report Type: Report from Study
  Country: ZA (occurrence: None)
  Receive Date: 20240412
  Receipt Date: 20240412
  Transmission Date: 20240716
  Serious: Yes (Life-Threatening, Other)
  Sender: FDA-Public Use
  Company Number: 2019SF22988

PATIENT
  Age: 28884 Day
  Sex: Male

DRUGS (1)
  1. BUDESONIDE\FORMOTEROL [Suspect]
     Active Substance: BUDESONIDE\FORMOTEROL
     Indication: Asthma
     Dosage: 320 UG, UNKNOWN
     Route: 055

REACTIONS (1)
  - Gastric haemorrhage [Unknown]

NARRATIVE: CASE EVENT DATE: 20190820
